FAERS Safety Report 17517525 (Version 1)
Quarter: 2020Q1

REPORT INFORMATION
  Report Type: Spontaneous
  Country: US (occurrence: US)
  Receive Date: 20200309
  Receipt Date: 20200309
  Transmission Date: 20200409
  Serious: No
  Sender: FDA-Public Use
  Company Number: None

PATIENT
  Age: 93 Year
  Sex: Male

DRUGS (1)
  1. WARFARIN [Suspect]
     Active Substance: WARFARIN
     Indication: ATRIAL FIBRILLATION

REACTIONS (8)
  - Mouth haemorrhage [None]
  - International normalised ratio increased [None]
  - Haemoglobin decreased [None]
  - Faeces discoloured [None]
  - Wound [None]
  - Therapy cessation [None]
  - Gingival bleeding [None]
  - Melaena [None]

NARRATIVE: CASE EVENT DATE: 20190801
